FAERS Safety Report 5393460-3 (Version None)
Quarter: 2007Q3

REPORT INFORMATION
  Report Type: 
  Country: None (occurrence: None)
  Receive Date: 20070723
  Receipt Date: 20060606
  Transmission Date: 20080115
  Serious: No
  Sender: FDA-Public Use
  Company Number: A0608050A

PATIENT
  Sex: Male

DRUGS (6)
  1. AVANDIA [Suspect]
     Dosage: 2MG FOUR TIMES PER DAY
     Route: 048
     Dates: start: 20050101
  2. METFORMIN HCL [Suspect]
     Dosage: 500MG FOUR TIMES PER DAY
     Route: 048
  3. GLYBURIDE [Concomitant]
  4. LESCOL XL [Concomitant]
  5. ASPIRIN [Concomitant]
  6. FERRIC SULFATE [Concomitant]

REACTIONS (1)
  - BLOOD GLUCOSE FLUCTUATION [None]
